FAERS Safety Report 6194248-6 (Version None)
Quarter: 2009Q2

REPORT INFORMATION
  Report Type: 
  Country: None (occurrence: None)
  Receive Date: 20090519
  Receipt Date: 20080328
  Transmission Date: 20091009
  Serious: Yes (Other)
  Sender: FDA-Public Use
  Company Number: US-ASTRAZENECA-2007UW05497

PATIENT
  Age: 514 Month
  Sex: Male

DRUGS (10)
  1. SEROQUEL [Suspect]
     Indication: BIPOLAR DISORDER
     Route: 048
     Dates: start: 20040301, end: 20050801
  2. SEROQUEL [Suspect]
     Indication: SCHIZOPHRENIA
     Route: 048
     Dates: start: 20040301, end: 20050801
  3. DEPAKOTE [Concomitant]
     Route: 065
  4. METFORMIN HCL [Concomitant]
     Route: 065
  5. NEXIUM [Concomitant]
     Route: 065
  6. ALTACE [Concomitant]
     Route: 065
  7. PRAVACHOL [Concomitant]
     Route: 065
  8. SINGULAIR [Concomitant]
     Route: 065
  9. FLONASE [Concomitant]
     Route: 065
  10. CLONAZEPAM [Concomitant]
     Route: 065

REACTIONS (14)
  - ABDOMINAL DISTENSION [None]
  - ABDOMINAL TENDERNESS [None]
  - ASTHENIA [None]
  - BLOOD CHOLESTEROL INCREASED [None]
  - CHEST PAIN [None]
  - COUGH [None]
  - DIABETES MELLITUS [None]
  - DYSPNOEA [None]
  - HAEMATURIA [None]
  - LOSS OF CONSCIOUSNESS [None]
  - OEDEMA PERIPHERAL [None]
  - PAIN IN EXTREMITY [None]
  - PANCREATITIS ACUTE [None]
  - PULMONARY EMBOLISM [None]
